FAERS Safety Report 7400783-2 (Version None)
Quarter: 2011Q2

REPORT INFORMATION
  Report Type: 
  Country: None (occurrence: None)
  Receive Date: 20110407
  Receipt Date: 20110329
  Transmission Date: 20111010
  Serious: Yes (Hospitalization)
  Sender: FDA-Public Use
  Company Number: B0709099A

PATIENT
  Sex: Male

DRUGS (5)
  1. TAZOCILLINE [Concomitant]
     Dosage: 4G THREE TIMES PER DAY
     Route: 042
     Dates: start: 20110221, end: 20110225
  2. TIENAM [Suspect]
     Dosage: 500MG THREE TIMES PER DAY
     Route: 042
     Dates: start: 20110301, end: 20110312
  3. VANCOMYCINE [Suspect]
     Dosage: 1G TWICE PER DAY
     Route: 042
     Dates: start: 20110221, end: 20110312
  4. FORTUM [Suspect]
     Dosage: 6G PER DAY
     Route: 042
     Dates: start: 20110225, end: 20110312
  5. CANCIDAS [Suspect]
     Dosage: 50MG PER DAY
     Route: 042
     Dates: start: 20110301, end: 20110312

REACTIONS (6)
  - RASH MACULO-PAPULAR [None]
  - DRUG RASH WITH EOSINOPHILIA AND SYSTEMIC SYMPTOMS [None]
  - HYPERTHERMIA [None]
  - CHOLESTASIS [None]
  - BLOOD BILIRUBIN INCREASED [None]
  - HEPATIC FAILURE [None]
